FAERS Safety Report 23445014 (Version 2)
Quarter: 2024Q2

REPORT INFORMATION
  Report Type: Spontaneous
  Country: DE (occurrence: DE)
  Receive Date: 20240125
  Receipt Date: 20240407
  Transmission Date: 20240716
  Serious: Yes (Other)
  Sender: FDA-Public Use
  Company Number: DE-BIOGEN-2023BI01224171

PATIENT

DRUGS (2)
  1. TYSABRI [Suspect]
     Active Substance: NATALIZUMAB
     Indication: Multiple sclerosis
     Route: 050
  2. RITUXIMAB [Suspect]
     Active Substance: RITUXIMAB
     Indication: Multiple sclerosis
     Route: 050

REACTIONS (5)
  - Multiple sclerosis relapse [Unknown]
  - Off label use [Unknown]
  - COVID-19 [Recovered/Resolved]
  - Asthenia [Unknown]
  - Incorrect drug administration rate [Unknown]
